FAERS Safety Report 8197645-2 (Version None)
Quarter: 2012Q1

REPORT INFORMATION
  Report Type: 
  Country: None (occurrence: None)
  Receive Date: 20120309
  Receipt Date: 20120301
  Transmission Date: 20120608
  Serious: Yes (Death, Other)
  Sender: FDA-Public Use
  Company Number: NZ-B.I. PHARMACEUTICALS,INC./RIDGEFIELD-2012-EU-01268GD

PATIENT
  Age: 88 Year
  Sex: Female

DRUGS (1)
  1. DABIGATRAN [Suspect]
     Dosage: 300 MG

REACTIONS (2)
  - DRUG PRESCRIBING ERROR [None]
  - HAEMORRHAGE INTRACRANIAL [None]
